FAERS Safety Report 10027783 (Version 1)
Quarter: 2014Q1

REPORT INFORMATION
  Report Type: Spontaneous
  Country: TR (occurrence: TR)
  Receive Date: 20140321
  Receipt Date: 20140321
  Transmission Date: 20141002
  Serious: Yes (Hospitalization, Other)
  Sender: FDA-Public Use
  Company Number: TR-NOVOPROD-403200

PATIENT
  Sex: Female
  Weight: 3.75 kg

DRUGS (3)
  1. NOVORAPID FLEXPEN [Suspect]
     Indication: GESTATIONAL DIABETES
     Dosage: 14 U, QD
     Route: 064
     Dates: start: 20140214, end: 20140224
  2. NOVORAPID FLEXPEN [Suspect]
     Indication: GESTATIONAL DIABETES
     Dosage: 14 U, QD
     Route: 064
     Dates: start: 20140214, end: 20140224
  3. FERRIC HYDROXIDE POLYMALTOSE COMPLEX [Concomitant]
     Indication: GESTATIONAL DIABETES
     Dosage: 1X1
     Route: 048
     Dates: start: 201401, end: 20140224

REACTIONS (4)
  - Respiratory disorder neonatal [Recovered/Resolved]
  - Jaundice neonatal [Recovered/Resolved]
  - Premature baby [Unknown]
  - Foetal exposure during pregnancy [Recovered/Resolved]
